FAERS Safety Report 9431634 (Version 1)
Quarter: 2013Q3

REPORT INFORMATION
  Report Type: Spontaneous
  Country: US (occurrence: US)
  Receive Date: 20130731
  Receipt Date: 20130731
  Transmission Date: 20140515
  Serious: No
  Sender: FDA-Public Use
  Company Number: US-BIOGENIDEC-2013BI068235

PATIENT
  Age: 18 Year
  Sex: Female

DRUGS (1)
  1. AVONEX [Suspect]
     Indication: MULTIPLE SCLEROSIS
     Route: 030
     Dates: start: 20130418

REACTIONS (5)
  - Somnolence [Not Recovered/Not Resolved]
  - Injury associated with device [Recovered/Resolved]
  - Stress [Not Recovered/Not Resolved]
  - Photophobia [Not Recovered/Not Resolved]
  - Depressed mood [Not Recovered/Not Resolved]
